FAERS Safety Report 5663743-8 (Version None)
Quarter: 2008Q1

REPORT INFORMATION
  Report Type: 
  Country: None (occurrence: None)
  Receive Date: 20080311
  Receipt Date: 20080227
  Transmission Date: 20080703
  Serious: Yes (Other)
  Sender: FDA-Public Use
  Company Number: 2008-172727-NL

PATIENT
  Age: 61 Year
  Sex: Male
  Weight: 100 kg

DRUGS (3)
  1. ZEMURON [Suspect]
     Indication: INDUCTION OF ANAESTHESIA
     Dosage: 10 MG ONCE INTRAVENOUS (NOS)
     Route: 042
  2. AMIDATE [Suspect]
     Indication: INDUCTION OF ANAESTHESIA
     Dosage: 20 MG ONCE INTRAVENOUS (NOS)
     Route: 042
  3. OXYGEN [Concomitant]

REACTIONS (10)
  - APNOEA [None]
  - ATRIAL FIBRILLATION [None]
  - CEREBROVASCULAR SPASM [None]
  - COMPUTERISED TOMOGRAM ABNORMAL [None]
  - CSF TEST ABNORMAL [None]
  - INCORRECT ROUTE OF DRUG ADMINISTRATION [None]
  - INFARCTION [None]
  - LOSS OF CONSCIOUSNESS [None]
  - RENAL FAILURE [None]
  - TOXIC EPIDERMAL NECROLYSIS [None]
